FAERS Safety Report 8219698-5 (Version None)
Quarter: 2012Q1

REPORT INFORMATION
  Report Type: 
  Country: None (occurrence: None)
  Receive Date: 20120319
  Receipt Date: 20120307
  Transmission Date: 20120608
  Serious: Yes (Death)
  Sender: FDA-Public Use
  Company Number: IN-ROCHE-1047155

PATIENT
  Age: 38 Year
  Weight: 70 kg

DRUGS (14)
  1. AVASTIN [Suspect]
     Route: 065
     Dates: start: 20111016
  2. IRINOTECAN HCL [Suspect]
     Route: 065
     Dates: start: 20111016
  3. AVASTIN [Suspect]
     Route: 065
     Dates: start: 20111106
  4. IRINOTECAN HCL [Suspect]
     Route: 065
     Dates: start: 20110902
  5. AVASTIN [Suspect]
     Route: 065
     Dates: start: 20111124
  6. IRINOTECAN HCL [Suspect]
     Route: 065
     Dates: start: 20111215
  7. AVASTIN [Suspect]
     Route: 065
     Dates: start: 20111002
  8. IRINOTECAN HCL [Suspect]
     Indication: GLIOBLASTOMA MULTIFORME
     Route: 065
     Dates: start: 20110813
  9. IRINOTECAN HCL [Suspect]
     Route: 065
     Dates: start: 20111002
  10. IRINOTECAN HCL [Suspect]
     Route: 065
     Dates: start: 20111124
  11. AVASTIN [Suspect]
     Route: 065
     Dates: start: 20110902
  12. AVASTIN [Suspect]
     Indication: GLIOBLASTOMA MULTIFORME
     Route: 065
     Dates: start: 20110813
  13. AVASTIN [Suspect]
     Route: 065
     Dates: start: 20111215
  14. IRINOTECAN HCL [Suspect]
     Route: 065
     Dates: start: 20111106

REACTIONS (1)
  - DEATH [None]
